FAERS Safety Report 9517348 (Version 1)
Quarter: 2013Q1

REPORT INFORMATION
  Report Type: Spontaneous
  Country: US (occurrence: None)
  Receive Date: 20130305
  Receipt Date: 20130305
  Transmission Date: 20140127
  Serious: Yes (Other)
  Sender: FDA-Public Use
  Company Number: 163-21880-12122115

PATIENT
  Age: 47 Year
  Sex: Male

DRUGS (9)
  1. REVLIMID (LENALIDOMIDE) (25 MILLIGRAM, CAPSULES) [Suspect]
     Indication: PLASMA CELL MYELOMA
     Dosage: 21 IN 28 DAYS
     Route: 048
     Dates: start: 20121114
  2. DEXAMETHASONE (DEXAMETHASONE) (TABLETS) [Concomitant]
  3. HYDROCODONE/ACETOMINOPHEN (REMEDEINE) (UNKNOWN) [Concomitant]
  4. ACYCLOVIR (ACICLOVIR) (TABLETS) [Concomitant]
  5. TREXIMET (NAPROXEN SODIUM/SUMATRIPTAN SUCCINATE) (TABLETS) [Concomitant]
  6. MAXALT (RIZATRIOTAN BENZOATE0 (TABLETS) [Concomitant]
  7. TOPIRAMATE (TOPIRAMATE) [Concomitant]
  8. NAPROXEN (NAPROXEN) (TABLETS) [Concomitant]
  9. VELCADE (BOTEZOMIB) (INJECTION) [Concomitant]

REACTIONS (2)
  - Tremor [None]
  - Rash [None]
